FAERS Safety Report 7018474-9 (Version None)
Quarter: 2010Q3

REPORT INFORMATION
  Report Type: 
  Country: None (occurrence: None)
  Receive Date: 20100923
  Receipt Date: 20100908
  Transmission Date: 20110219
  Serious: Yes (Hospitalization)
  Sender: FDA-Public Use
  Company Number: AUR-APL-2010-02341

PATIENT
  Age: 79 Year
  Sex: Female

DRUGS (10)
  1. SIMVASTATIN [Suspect]
     Dosage: 20MG, DAILY, ORAL
     Route: 048
  2. ALENDRONATE SODIUM [Suspect]
     Dosage: 70MG, ONCE WEEKLY, ORAL
     Route: 048
  3. TROMBYL TABLET [Suspect]
     Dosage: 75MG, DAILY, ORAL
     Route: 048
  4. PREDNISOLONE TAB [Suspect]
     Dosage: 5MG, DAILY, ORAL
     Route: 048
  5. WARFARIN SODIUM [Suspect]
     Dosage: ORAL
     Route: 048
     Dates: start: 20100428, end: 20100626
  6. ATACAND TABLET [Concomitant]
  7. PANODIL FILM-COATED TABLET [Concomitant]
  8. NORMORIX TABLET [Concomitant]
  9. SELOKEN ZOC PROLONGED-RELEASE TABLET [Concomitant]
  10. CALCICHEW-D3 CHEWABLE TABLET [Concomitant]

REACTIONS (4)
  - DIZZINESS [None]
  - FATIGUE [None]
  - GASTROINTESTINAL HAEMORRHAGE [None]
  - HAEMOGLOBIN DECREASED [None]
